FAERS Safety Report 4761251-X (Version None)
Quarter: 2005Q3

REPORT INFORMATION
  Report Type: 
  Country: None (occurrence: None)
  Receive Date: 20050906
  Receipt Date: 20050826
  Transmission Date: 20060218
  Serious: Yes (Hospitalization)
  Sender: FDA-Public Use
  Company Number: PHBS2005CH12456

PATIENT
  Age: 46 Year
  Sex: Female

DRUGS (7)
  1. ZOMETA [Suspect]
     Indication: METASTASES TO BONE
     Dosage: 4 MG, QMO
     Route: 042
     Dates: start: 20050401, end: 20050701
  2. CISPLATIN [Suspect]
     Indication: LUNG CARCINOMA CELL TYPE UNSPECIFIED STAGE IV
     Dosage: 130 MG EVERY 21 DAYS
     Route: 042
     Dates: start: 20050427, end: 20050804
  3. NAVELBINE [Suspect]
     Indication: LUNG CARCINOMA CELL TYPE UNSPECIFIED STAGE IV
     Dosage: 50 MG EVERY 21 DAYS
     Route: 042
     Dates: start: 20050427, end: 20050804
  4. NAVELBINE [Suspect]
     Dosage: 130 MG EVERY 21 DAYS
     Route: 048
     Dates: start: 20050804, end: 20050812
  5. MS CONTIN [Concomitant]
     Dosage: 20 MG/D
     Dates: start: 20050504
  6. PANTOZOL [Concomitant]
     Dosage: 20 MG/D
     Dates: start: 20050401
  7. CALCIMAGON-D3 [Concomitant]
     Dosage: 1 DF, QD
     Dates: start: 20050401

REACTIONS (4)
  - AGRANULOCYTOSIS [None]
  - ASEPTIC NECROSIS BONE [None]
  - BONE DEBRIDEMENT [None]
  - FEBRILE NEUTROPENIA [None]
